FAERS Safety Report 6081195-3 (Version None)
Quarter: 2009Q1

REPORT INFORMATION
  Report Type: 
  Country: None (occurrence: None)
  Receive Date: 20090121
  Receipt Date: 20080428
  Transmission Date: 20090719
  Serious: Yes (Other)
  Sender: FDA-Public Use
  Company Number: HQWYE089414AUG03

PATIENT
  Age: 52 Year
  Sex: Female
  Weight: 79.45 kg

DRUGS (8)
  1. PREMPRO [Suspect]
     Indication: HOT FLUSH
     Dosage: 0.625MG/2.5MG, ORAL
     Route: 048
     Dates: end: 20000101
  2. PREMPRO [Suspect]
     Indication: MENOPAUSE
     Dosage: 0.625MG/2.5MG, ORAL
     Route: 048
     Dates: end: 20000101
  3. PREMARIN [Suspect]
     Indication: HORMONE REPLACEMENT THERAPY
     Dosage: 0.625MG DAILY
  4. PROVERA [Suspect]
     Indication: HORMONE REPLACEMENT THERAPY
     Dosage: 5MG, ORAL
     Route: 048
  5. TRICOR [Concomitant]
  6. DIOVAN [Concomitant]
  7. SYNTHROID [Concomitant]
  8. FOSAMAX [Concomitant]

REACTIONS (1)
  - BREAST CANCER [None]
